FAERS Safety Report 15997615 (Version 1)
Quarter: 2019Q1

REPORT INFORMATION
  Report Type: Spontaneous
  Country: US (occurrence: US)
  Receive Date: 20190222
  Receipt Date: 20190222
  Transmission Date: 20190418
  Serious: No
  Sender: FDA-Public Use
  Company Number: US-TEVA-2019-US-1005218

PATIENT
  Age: 7 Year
  Sex: Male

DRUGS (2)
  1. AZITHROMYCIN ORAL SUSPENSION [Suspect]
     Active Substance: AZITHROMYCIN
     Dosage: 5 MG/KG FOR T DAYS TWO THROUGH FIVE
     Route: 048
  2. AZITHROMYCIN ORAL SUSPENSION [Suspect]
     Active Substance: AZITHROMYCIN
     Indication: EAR INFECTION
     Dosage: 10 MG/KG FOR THE FIRST DAY
     Route: 048

REACTIONS (1)
  - Ear infection [Unknown]
